FAERS Safety Report 8901473 (Version 2)
Quarter: 2013Q4

REPORT INFORMATION
  Report Type: Spontaneous
  Country: US (occurrence: US)
  Receive Date: 20121108
  Receipt Date: 20131107
  Transmission Date: 20140711
  Serious: Yes (Hospitalization, Other)
  Sender: FDA-Public Use
  Company Number: US-ASTRAZENECA-2012SE80929

PATIENT
  Age: 60 Year
  Sex: Female
  Weight: 61.2 kg

DRUGS (13)
  1. SYMBICORT PMDI [Suspect]
     Indication: DYSPNOEA
     Dosage: 160/4.5 MCG, 2 PUFFS, BID
     Route: 055
  2. NEXIUM [Suspect]
     Indication: GASTROOESOPHAGEAL REFLUX DISEASE
     Route: 048
     Dates: start: 2009, end: 20131028
  3. NAPROXEN [Suspect]
     Indication: PAIN
     Route: 048
     Dates: start: 20131007
  4. RANITIDINE [Concomitant]
     Indication: DYSPEPSIA
     Route: 048
     Dates: start: 20131007
  5. GABAPENTIN [Concomitant]
     Indication: HERPES ZOSTER
     Route: 048
     Dates: start: 2011
  6. VERAPAMIL [Concomitant]
     Indication: BLOOD PRESSURE ABNORMAL
     Route: 048
     Dates: start: 2011
  7. VERAPAMIL [Concomitant]
     Indication: HEART RATE ABNORMAL
     Route: 048
     Dates: start: 2011
  8. DALIRESP [Concomitant]
     Indication: DYSPNOEA
     Route: 048
     Dates: start: 20131015
  9. ASPIRIN [Concomitant]
     Indication: CARDIAC DISORDER
     Route: 048
     Dates: start: 2011
  10. SINGULAIR [Concomitant]
     Indication: HYPERSENSITIVITY
     Route: 048
     Dates: start: 2008
  11. CALCIUM [Concomitant]
     Indication: MINERAL SUPPLEMENTATION
     Route: 048
  12. TUDORZA [Concomitant]
     Indication: DYSPNOEA
     Route: 055
     Dates: start: 2012
  13. PROVENTIL [Concomitant]
     Indication: DYSPNOEA
     Dosage: UNKNOWN PRN
     Route: 055

REACTIONS (12)
  - Cerebrovascular accident [Unknown]
  - Chronic obstructive pulmonary disease [Unknown]
  - Dyspnoea [Unknown]
  - Muscle spasms [Unknown]
  - Choking [Unknown]
  - Memory impairment [Unknown]
  - Dyspepsia [Unknown]
  - Herpes zoster [Unknown]
  - Nerve injury [Unknown]
  - Blister [Unknown]
  - Dyspepsia [Not Recovered/Not Resolved]
  - Drug dose omission [Unknown]
